FAERS Safety Report 5351139-8 (Version None)
Quarter: 2007Q2

REPORT INFORMATION
  Report Type: 
  Country: None (occurrence: None)
  Receive Date: 20070608
  Receipt Date: 20070530
  Transmission Date: 20071010
  Serious: Yes (Hospitalization)
  Sender: FDA-Public Use
  Company Number: JP-PFIZER INC-2007041768

PATIENT
  Age: 71 Year
  Sex: Female

DRUGS (5)
  1. NORVASC [Suspect]
     Indication: HYPERTENSION
     Dosage: DAILY DOSE:2.5MG-FREQ:DAILY
     Route: 048
  2. NORVASC [Suspect]
     Dosage: DAILY DOSE:5MG-FREQ:DAILY
     Route: 048
  3. THEOLONG [Concomitant]
     Route: 048
  4. DIOVAN [Concomitant]
     Route: 048
  5. MUCOSOLVAN [Concomitant]
     Route: 048

REACTIONS (1)
  - ASTHMA [None]
